FAERS Safety Report 17690666 (Version 1)
Quarter: 2020Q2

REPORT INFORMATION
  Report Type: Spontaneous
  Country: GB (occurrence: GB)
  Receive Date: 20200421
  Receipt Date: 20200421
  Transmission Date: 20200714
  Serious: Yes (Hospitalization, Other)
  Sender: FDA-Public Use
  Company Number: GB-AUROBINDO-AUR-APL-2020-019859

PATIENT
  Age: 54 Year
  Sex: Female

DRUGS (4)
  1. CLOPIDOGREL [Suspect]
     Active Substance: CLOPIDOGREL BISULFATE
     Indication: PRODUCT USED FOR UNKNOWN INDICATION
     Dosage: 75 MILLIGRAM, ONCE A DAY, IN MORNING
     Route: 048
  2. RIVAROXABAN FILM COATED TABLETS [Suspect]
     Active Substance: RIVAROXABAN
     Indication: DEEP VEIN THROMBOSIS
     Dosage: 20 MILLIGRAM, ONCE A DAY
     Route: 048
     Dates: end: 20190703
  3. VITAMIN B COMPOUND STRONG [Concomitant]
     Active Substance: NIACINAMIDE\PYRIDOXINE HYDROCHLORIDE\RIBOFLAVIN\THIAMINE HYDROCHLORIDE
     Indication: PRODUCT USED FOR UNKNOWN INDICATION
     Dosage: 3 DOSAGE FORM, ONCE A DAY
     Route: 048
  4. THIAMINE. [Concomitant]
     Active Substance: THIAMINE
     Indication: PRODUCT USED FOR UNKNOWN INDICATION
     Dosage: 200 MILLIGRAM, ONCE A DAY
     Route: 048

REACTIONS (2)
  - Gastrointestinal haemorrhage [Recovering/Resolving]
  - Varices oesophageal [Unknown]

NARRATIVE: CASE EVENT DATE: 20190703
